FAERS Safety Report 7670750-2 (Version None)
Quarter: 2011Q3

REPORT INFORMATION
  Report Type: 
  Country: None (occurrence: None)
  Receive Date: 20110809
  Receipt Date: 20110802
  Transmission Date: 20111222
  Serious: Yes (Life-Threatening, Hospitalization)
  Sender: FDA-Public Use
  Company Number: FR-SP-2011-03702

PATIENT
  Sex: Male

DRUGS (9)
  1. NEXIUM [Concomitant]
  2. KAYEXALATE [Concomitant]
  3. EUPRESSYL (URAPIDIL) [Concomitant]
  4. AMLODIPINE [Concomitant]
  5. CORDARONE [Concomitant]
  6. LASIX [Concomitant]
  7. RAMIPRIL [Concomitant]
  8. NEURONTIN (GABAPENTINE) [Concomitant]
  9. IMMUCYST [Suspect]
     Indication: TRANSITIONAL CELL CARCINOMA
     Route: 043
     Dates: start: 20110331, end: 20110331

REACTIONS (8)
  - SEPSIS [None]
  - ACUTE RESPIRATORY DISTRESS SYNDROME [None]
  - BOVINE TUBERCULOSIS [None]
  - PYREXIA [None]
  - HYPOTENSION [None]
  - ATRIAL FIBRILLATION [None]
  - CHILLS [None]
  - ASTHENIA [None]
